FAERS Safety Report 8383625-0 (Version None)
Quarter: 2012Q2

REPORT INFORMATION
  Report Type: 
  Country: None (occurrence: None)
  Receive Date: 20120524
  Receipt Date: 20120516
  Transmission Date: 20120825
  Serious: Yes (Death)
  Sender: FDA-Public Use
  Company Number: JP-ASTRAZENECA-2012SE24249

PATIENT
  Age: 68 Year
  Sex: Male
  Weight: 45 kg

DRUGS (13)
  1. SEROQUEL [Suspect]
     Route: 050
     Dates: start: 20110210
  2. HICEE [Concomitant]
     Route: 048
     Dates: start: 20100309, end: 20101224
  3. LAXOBERON [Concomitant]
     Indication: CONSTIPATION
     Dates: start: 20110128
  4. RACOL [Concomitant]
  5. ARICEPT [Concomitant]
     Indication: DEMENTIA
     Route: 048
     Dates: start: 20100309, end: 20101224
  6. YOKUKAN-SAN [Concomitant]
     Route: 048
     Dates: start: 20100309, end: 20101224
  7. MAGMITT [Concomitant]
  8. SODIUM CHLORIDE [Concomitant]
  9. VITAMEDIN (BENFOTIAMINE) [Concomitant]
     Route: 048
     Dates: start: 20100309, end: 20101224
  10. ZYPREXA [Concomitant]
     Route: 048
     Dates: start: 20100827, end: 20101224
  11. SENNOSIDE [Concomitant]
     Indication: CONSTIPATION
     Route: 048
     Dates: start: 20110127
  12. SEROQUEL [Suspect]
     Indication: FRONTOTEMPORAL DEMENTIA
     Route: 048
     Dates: start: 20101224, end: 20110210
  13. ASVERIN [Concomitant]
     Dates: start: 20100309, end: 20101224

REACTIONS (2)
  - OFF LABEL USE [None]
  - CARDIAC ARREST [None]
